FAERS Safety Report 5410729-4 (Version None)
Quarter: 2007Q3

REPORT INFORMATION
  Report Type: 
  Country: None (occurrence: None)
  Receive Date: 20070810
  Receipt Date: 20070213
  Transmission Date: 20080115
  Serious: No
  Sender: FDA-Public Use
  Company Number: A0636523A

PATIENT
  Age: 55 Year
  Sex: Female

DRUGS (8)
  1. PAXIL CR [Suspect]
     Indication: DRUG USE FOR UNKNOWN INDICATION
     Dosage: 25MG PER DAY
     Route: 048
     Dates: start: 20060801
  2. TRAZODONE HCL [Concomitant]
  3. ALLEGRA [Concomitant]
  4. ACCUPRIL [Concomitant]
  5. AMBIEN [Concomitant]
  6. SOMA [Concomitant]
  7. PERCOCET [Concomitant]
  8. KADIAN [Concomitant]

REACTIONS (2)
  - PHARMACEUTICAL PRODUCT COMPLAINT [None]
  - SOMNOLENCE [None]
